FAERS Safety Report 5102995-X (Version None)
Quarter: 2006Q3

REPORT INFORMATION
  Report Type: 
  Country: None (occurrence: None)
  Receive Date: 20060908
  Receipt Date: 20060821
  Transmission Date: 20061208
  Serious: Yes (Other)
  Sender: FDA-Public Use
  Company Number: 229517

PATIENT
  Age: 53 Year
  Sex: Female
  Weight: 67.3 kg

DRUGS (3)
  1. HERCEPTIN [Suspect]
     Indication: BREAST CANCER
     Dosage: 545 MG, INTRAVENOUS; 400 MG, INTRAVENOUS
     Route: 042
     Dates: start: 20060627
  2. HERCEPTIN [Suspect]
     Indication: BREAST CANCER
     Dosage: 545 MG, INTRAVENOUS; 400 MG, INTRAVENOUS
     Route: 042
     Dates: start: 20060718
  3. VITAMIN (VITAMINS NOS) [Concomitant]

REACTIONS (4)
  - ASTHENIA [None]
  - ERYTHEMA MULTIFORME [None]
  - FLUSHING [None]
  - RASH [None]
